FAERS Safety Report 11910070 (Version 1)
Quarter: 2016Q1

REPORT INFORMATION
  Report Type: Spontaneous
  Country: US (occurrence: None)
  Receive Date: 20160111
  Receipt Date: 20160111
  Transmission Date: 20160526
  Serious: Yes (Life-Threatening, Hospitalization)
  Sender: FDA-Public Use
  Company Number: None

PATIENT
  Age: 68 Year
  Sex: Female

DRUGS (9)
  1. FOLATE [Concomitant]
     Active Substance: FOLATE SODIUM
  2. TRIMETHYLGLYCINE [Concomitant]
  3. HOMEOPATHIC DETOX [Suspect]
     Active Substance: HOMEOPATHICS
     Indication: WEIGHT DECREASED
     Route: 048
     Dates: start: 20151116, end: 20151209
  4. CONENZYME B6 [Concomitant]
  5. PHOSPHATIDYLCHOLINE [Concomitant]
     Active Substance: LECITHIN
  6. B-BOOST NUTRITIONAL SUPPLEMENT [Suspect]
     Active Substance: DIETARY SUPPLEMENT
     Indication: WEIGHT DECREASED
     Route: 048
     Dates: start: 20151116, end: 20151209
  7. HOMEOPATHIC WEIGHT MANAGEMENT SUPPORT [Suspect]
     Active Substance: HOMEOPATHICS
     Indication: WEIGHT DECREASED
     Route: 048
     Dates: start: 20151116, end: 20151209
  8. VITAMIN B12 [Concomitant]
     Active Substance: CYANOCOBALAMIN
  9. PYRIDOXAL 5-PHOSPHATE [Concomitant]

REACTIONS (2)
  - Hyponatraemia [None]
  - Hyperkalaemia [None]
